FAERS Safety Report 4847414-3 (Version None)
Quarter: 2005Q4

REPORT INFORMATION
  Report Type: 
  Country: None (occurrence: None)
  Receive Date: 20051205
  Receipt Date: 20051124
  Transmission Date: 20060501
  Serious: Yes (Other)
  Sender: FDA-Public Use
  Company Number: 2005159611

PATIENT
  Age: 46 Year
  Sex: Female
  Weight: 63.5036 kg

DRUGS (1)
  1. BENADRYL [Suspect]
     Indication: ARTHROPOD BITE
     Dosage: 2 KAPSEALS EVERY 6 HOURS, ORAL
     Route: 048
     Dates: start: 20051123

REACTIONS (4)
  - CONDITION AGGRAVATED [None]
  - FACE OEDEMA [None]
  - NASAL OEDEMA [None]
  - RESPIRATORY DISORDER [None]
